FAERS Safety Report 9831551 (Version 1)
Quarter: 2014Q1

REPORT INFORMATION
  Report Type: Spontaneous
  Country: CA (occurrence: CA)
  Receive Date: 20140121
  Receipt Date: 20140121
  Transmission Date: 20141002
  Serious: Yes (Hospitalization, Other)
  Sender: FDA-Public Use
  Company Number: CA-AMGEN-CANSP2014003294

PATIENT
  Age: 74 Year
  Sex: Female

DRUGS (1)
  1. PROLIA [Suspect]
     Indication: OSTEOPOROSIS POSTMENOPAUSAL
     Dosage: UNK
     Route: 065
     Dates: start: 20110407

REACTIONS (6)
  - Bladder cancer [Unknown]
  - Post procedural haemorrhage [Unknown]
  - Diarrhoea [Unknown]
  - Influenza [Unknown]
  - White blood cells urine positive [Unknown]
  - Hypertonic bladder [Unknown]
